FAERS Safety Report 16180030 (Version 1)
Quarter: 2019Q2

REPORT INFORMATION
  Report Type: Spontaneous
  Country: US (occurrence: US)
  Receive Date: 20190409
  Receipt Date: 20190409
  Transmission Date: 20190711
  Serious: Yes (Hospitalization)
  Sender: FDA-Public Use
  Company Number: None

PATIENT
  Age: 85 Year
  Sex: Female
  Weight: 67.5 kg

DRUGS (7)
  1. TIMOLOL. [Suspect]
     Active Substance: TIMOLOL
     Indication: MACULAR DEGENERATION
     Dosage: ?          QUANTITY:1 DROP(S);OTHER FREQUENCY:ONE TIME;?
     Route: 047
  2. ASPIRIN. [Concomitant]
     Active Substance: ASPIRIN
  3. TRUSOPT [Suspect]
     Active Substance: DORZOLAMIDE HYDROCHLORIDE
     Indication: MACULAR DEGENERATION
     Dosage: ?          QUANTITY:1 DROP(S);OTHER FREQUENCY:ONE TIME;?
     Route: 047
  4. XANAX [Concomitant]
     Active Substance: ALPRAZOLAM
  5. TRAZODONE [Concomitant]
     Active Substance: TRAZODONE HYDROCHLORIDE
  6. TYLENOL WITH CODEINE [Concomitant]
     Active Substance: ACETAMINOPHEN\CODEINE PHOSPHATE
  7. ALOE VERA [Concomitant]
     Active Substance: ALOE VERA LEAF

REACTIONS (1)
  - Hypertension [None]

NARRATIVE: CASE EVENT DATE: 20180121
